FAERS Safety Report 9696328 (Version 1)
Quarter: 2013Q4

REPORT INFORMATION
  Report Type: Spontaneous
  Country: BR (occurrence: BR)
  Receive Date: 20131119
  Receipt Date: 20131119
  Transmission Date: 20140711
  Serious: Yes (Hospitalization, Other)
  Sender: FDA-Public Use
  Company Number: BR-MERCK-1311BRA005174

PATIENT
  Age: 30 Year
  Sex: Female
  Weight: 60 kg

DRUGS (2)
  1. MERCILON [Suspect]
     Indication: CONTRACEPTION
     Dosage: 1 DF, QD
     Route: 048
     Dates: start: 2003
  2. MERCILON [Suspect]
     Dosage: 1 DF, QD
     Route: 048
     Dates: start: 2008, end: 20131110

REACTIONS (17)
  - Breast mass [Recovered/Resolved]
  - Mass excision [Unknown]
  - Caesarean section [Unknown]
  - Nasal septum deviation [Not Recovered/Not Resolved]
  - Nasal septal operation [Unknown]
  - Gallbladder operation [Unknown]
  - Cholelithiasis [Recovered/Resolved]
  - Post procedural complication [Unknown]
  - Keloid scar [Unknown]
  - Surgical procedure repeated [Unknown]
  - Complication of delivery [Unknown]
  - Epistaxis [Not Recovered/Not Resolved]
  - Anaemia [Not Recovered/Not Resolved]
  - Headache [Recovered/Resolved]
  - Headache [Not Recovered/Not Resolved]
  - Metrorrhagia [Recovered/Resolved]
  - Maternal exposure before pregnancy [Unknown]
